FAERS Safety Report 18008420 (Version 1)
Quarter: 2020Q3

REPORT INFORMATION
  Report Type: Spontaneous
  Country: DE (occurrence: DE)
  Receive Date: 20200710
  Receipt Date: 20200710
  Transmission Date: 20201103
  Serious: Yes (Other)
  Sender: FDA-Public Use
  Company Number: DE-BRISTOL-MYERS SQUIBB COMPANY-BMS-2020-050215

PATIENT
  Sex: Female

DRUGS (3)
  1. TRIAMCINOLONE ACETONIDE. [Suspect]
     Active Substance: TRIAMCINOLONE ACETONIDE
     Indication: MUSCULOSKELETAL PAIN
     Dosage: 40 MILLIGRAM
     Route: 014
     Dates: start: 2020
  2. KALETRA [Interacting]
     Active Substance: LOPINAVIR\RITONAVIR
     Indication: HIV INFECTION
     Dosage: UNK
     Route: 048
     Dates: end: 2020
  3. TRIAMCINOLONE ACETONIDE. [Interacting]
     Active Substance: TRIAMCINOLONE ACETONIDE
     Indication: CUSHING^S SYNDROME

REACTIONS (9)
  - Cushing^s syndrome [Unknown]
  - Metabolic disorder [Unknown]
  - Cushingoid [Unknown]
  - Hypertension [Unknown]
  - Mood swings [Unknown]
  - Drug interaction [Unknown]
  - Night sweats [Unknown]
  - Arthralgia [Unknown]
  - Palpitations [Unknown]
